FAERS Safety Report 23036050 (Version 1)
Quarter: 2023Q4

REPORT INFORMATION
  Report Type: Report from Study
  Country: CO (occurrence: CO)
  Receive Date: 20231006
  Receipt Date: 20231006
  Transmission Date: 20240109
  Serious: Yes (Death, Life-Threatening)
  Sender: FDA-Public Use
  Company Number: CO-RECORDATI-2023006970

PATIENT

DRUGS (2)
  1. CARBAGLU [Suspect]
     Active Substance: CARGLUMIC ACID
     Indication: Hyperammonaemia
     Dosage: 100MG/KG/DAY
     Dates: start: 20230926, end: 20230928
  2. CARBAGLU [Suspect]
     Active Substance: CARGLUMIC ACID
     Indication: Aspergillus infection

REACTIONS (2)
  - Death [Fatal]
  - Hyperammonaemia [Not Recovered/Not Resolved]

NARRATIVE: CASE EVENT DATE: 20230928
